FAERS Safety Report 4768375-1 (Version None)
Quarter: 2005Q3

REPORT INFORMATION
  Report Type: 
  Country: None (occurrence: None)
  Receive Date: 20050906
  Receipt Date: 20050720
  Transmission Date: 20060218
  Serious: No
  Sender: FDA-Public Use
  Company Number: 2005-BP-12289BP

PATIENT
  Age: 70 Year
  Sex: Female

DRUGS (9)
  1. SPIRIVA [Suspect]
     Indication: CHRONIC OBSTRUCTIVE PULMONARY DISEASE
     Dosage: 18 MG (18 MG, QD), IH
     Route: 055
     Dates: start: 20050525, end: 20050607
  2. OXYGEN (OXYGEN) [Concomitant]
  3. ADVAIR DISKUS 100/50 [Concomitant]
  4. PREDNISONE [Concomitant]
  5. IPRATROPIUM BROMIDE [Concomitant]
  6. ALBUTEROL [Concomitant]
  7. PIROXICAM [Concomitant]
  8. AVALIDE (KARVEA HCT) [Concomitant]
  9. PRILOSEC [Concomitant]

REACTIONS (6)
  - APHTHOUS STOMATITIS [None]
  - GINGIVAL DISORDER [None]
  - LEUKOPLAKIA ORAL [None]
  - OEDEMA MOUTH [None]
  - URINARY TRACT INFECTION [None]
  - VISION BLURRED [None]
